FAERS Safety Report 9262457 (Version 2)
Quarter: 2013Q2

REPORT INFORMATION
  Report Type: Spontaneous
  Country: AU (occurrence: None)
  Receive Date: 20130425
  Receipt Date: 20130523
  Transmission Date: 20140414
  Serious: Yes (Hospitalization)
  Sender: FDA-Public Use
  Company Number: ACO_35591_2013

PATIENT
  Age: 48 Year
  Sex: Female

DRUGS (7)
  1. FAMPRIDINE-SR (FAMPRIDINE) TABLET [Suspect]
     Indication: MULTIPLE SCLEROSIS
     Route: 048
     Dates: start: 20120712
  2. TYSABRI (NATALIZUMAB) [Concomitant]
  3. BACLOFEN (BACLOFEN) [Concomitant]
  4. TEGRETOL (CARBAMAZEPINE) UNKNOWN [Concomitant]
  5. DITROPAN (OXYBUTYNIN HYDROCHLORIDE) [Concomitant]
  6. VITAMIN D (COLECALCIFEROL) [Concomitant]
  7. COLOXYL W/SENNA (DOCUSATE SODIUM, SENNOSIDE A+B) [Concomitant]

REACTIONS (12)
  - Pain [None]
  - Musculoskeletal stiffness [None]
  - Gamma-glutamyltransferase increased [None]
  - Red cell distribution width increased [None]
  - Lymphocyte count increased [None]
  - Fall [None]
  - Ankle fracture [None]
  - Avulsion fracture [None]
  - Ankle fracture [None]
  - Post-traumatic pain [None]
  - Muscular weakness [None]
  - Constipation [None]
